FAERS Safety Report 19857274 (Version 1)
Quarter: 2021Q3

REPORT INFORMATION
  Report Type: Spontaneous
  Country: CA (occurrence: CA)
  Receive Date: 20210920
  Receipt Date: 20210920
  Transmission Date: 20211014
  Serious: Yes (Other)
  Sender: FDA-Public Use
  Company Number: CA-TEVA-2021-CA-1954624

PATIENT
  Age: 32 Year
  Sex: Male

DRUGS (15)
  1. ABILIFY MAINTENA [Suspect]
     Active Substance: ARIPIPRAZOLE
     Indication: SCHIZOPHRENIA
     Route: 065
  2. RISPERDAL [Suspect]
     Active Substance: RISPERIDONE
     Indication: SCHIZOPHRENIA
     Route: 065
  3. ZYPREXA [Suspect]
     Active Substance: OLANZAPINE
     Indication: SCHIZOPHRENIA
     Route: 065
  4. QUETIAPINE FUMARATE. [Suspect]
     Active Substance: QUETIAPINE FUMARATE
     Indication: PRODUCT USED FOR UNKNOWN INDICATION
     Route: 065
  5. SAPHRIS [Suspect]
     Active Substance: ASENAPINE MALEATE
     Indication: SCHIZOPHRENIA
     Route: 065
  6. ZIPRASIDONE HYDROHLORIDE [Suspect]
     Active Substance: ZIPRASIDONE HYDROCHLORIDE
     Indication: PRODUCT USED FOR UNKNOWN INDICATION
     Route: 065
  7. INVEGA [Suspect]
     Active Substance: PALIPERIDONE
     Indication: SCHIZOPHRENIA
     Route: 065
  8. CLOZAPINE. [Suspect]
     Active Substance: CLOZAPINE
     Indication: SCHIZOPHRENIA
     Route: 065
  9. ZIPRASIDONE HYDROHLORIDE [Suspect]
     Active Substance: ZIPRASIDONE HYDROCHLORIDE
     Route: 065
  10. LATUDA [Suspect]
     Active Substance: LURASIDONE HYDROCHLORIDE
     Indication: SCHIZOPHRENIA
     Route: 065
  11. ZIPRASIDONE HYDROHLORIDE [Suspect]
     Active Substance: ZIPRASIDONE HYDROCHLORIDE
     Route: 065
  12. INVEGA [Suspect]
     Active Substance: PALIPERIDONE
     Route: 065
  13. ZIPRASIDONE HYDROHLORIDE [Suspect]
     Active Substance: ZIPRASIDONE HYDROCHLORIDE
     Indication: SCHIZOPHRENIA
     Route: 065
  14. FLUPENTIXOL [Suspect]
     Active Substance: FLUPENTIXOL
     Indication: SCHIZOPHRENIA
     Route: 065
  15. ZIPRASIDONE HYDROHLORIDE [Suspect]
     Active Substance: ZIPRASIDONE HYDROCHLORIDE
     Route: 065

REACTIONS (13)
  - Metabolic disorder [Unknown]
  - Suicide attempt [Unknown]
  - Anosognosia [Unknown]
  - Condition aggravated [Unknown]
  - Sedation [Unknown]
  - Drug ineffective [Unknown]
  - Disturbance in social behaviour [Unknown]
  - Dyskinesia [Unknown]
  - Sexual dysfunction [Unknown]
  - Personality change [Unknown]
  - Blood glucose increased [Unknown]
  - Blood prolactin abnormal [Unknown]
  - Dystonia [Unknown]
